FAERS Safety Report 7817992 (Version 2)
Quarter: 2012Q4

REPORT INFORMATION
  Report Type: 
  Country: PH (occurrence: PH)
  Receive Date: 20110217
  Receipt Date: 20120927
  Transmission Date: 20130627
  Serious: Yes (Death, Other)
  Sender: FDA-Public Use
  Company Number: PHHY2011PH11965

PATIENT
  Sex: Female

DRUGS (3)
  1. GLIVEC [Suspect]
     Indication: GASTROINTESTINAL STROMAL TUMOUR
     Dosage: 400 mg/day
     Route: 048
  2. GLIVEC [Suspect]
     Dates: start: 20040708
  3. DRUG THERAPY NOS [Concomitant]

REACTIONS (3)
  - Cardio-respiratory arrest [Fatal]
  - Multi-organ failure [Fatal]
  - Pneumonia [Unknown]
